FAERS Safety Report 8930485 (Version 3)
Quarter: 2013Q1

REPORT INFORMATION
  Report Type: Spontaneous
  Country: US (occurrence: US)
  Receive Date: 20121128
  Receipt Date: 20130227
  Transmission Date: 20140127
  Serious: Yes (Hospitalization, Other)
  Sender: FDA-Public Use
  Company Number: US-BAYER-2012-124485

PATIENT
  Age: 24 Year
  Sex: Female
  Weight: 71.66 kg

DRUGS (6)
  1. YAZ [Suspect]
     Indication: CONTRACEPTION
     Dosage: UNK
     Dates: start: 200907, end: 20091001
  2. YAZ [Suspect]
     Indication: PREMENSTRUAL DYSPHORIC DISORDER
  3. ZOLOFT [Concomitant]
     Indication: DEPRESSION
  4. IMITREX [Concomitant]
  5. IBUPROFEN [Concomitant]
  6. NAPROXEN [Concomitant]

REACTIONS (4)
  - Deep vein thrombosis [None]
  - Contraindication to medical treatment [None]
  - Deep vein thrombosis [None]
  - Varicose vein [None]
